FAERS Safety Report 22604768 (Version 1)
Quarter: 2023Q2

REPORT INFORMATION
  Report Type: Other
  Country: BE (occurrence: None)
  Receive Date: 20230615
  Receipt Date: 20230615
  Transmission Date: 20230721
  Serious: Yes (Death)
  Sender: FDA-Public Use
  Company Number: BE-ROCHE-3367539

PATIENT

DRUGS (2)
  1. EMICIZUMAB [Suspect]
     Active Substance: EMICIZUMAB
     Indication: Acquired haemophilia
     Dosage: ADMINISTERED WEEKLY FOR 4 WEEKS (3 MG/KG) WHEREAFTER THE DOSE INTERVAL WAS INCREASED TO 2 WEEKS (3 M
     Route: 065
  2. RITUXIMAB [Suspect]
     Active Substance: RITUXIMAB
     Indication: Acquired haemophilia
     Route: 042

REACTIONS (1)
  - Staphylococcal sepsis [Fatal]
